FAERS Safety Report 9083530 (Version 1)
Quarter: 2013Q1

REPORT INFORMATION
  Report Type: Report from Study
  Country: US (occurrence: US)
  Receive Date: 20130130
  Receipt Date: 20130130
  Transmission Date: 20140127
  Serious: Yes (Hospitalization)
  Sender: FDA-Public Use
  Company Number: US-ABBOTT-12P-163-0925773-00

PATIENT
  Age: 38 Year
  Sex: Male

DRUGS (4)
  1. HUMIRA 40 MG/0.8 ML PEN [Suspect]
     Indication: ANKYLOSING SPONDYLITIS
     Dates: start: 20120409, end: 20120425
  2. CELEBREX [Concomitant]
     Indication: ANKYLOSING SPONDYLITIS
     Dosage: 100 MG DAILY
  3. CELEBREX [Concomitant]
     Indication: RHEUMATOID ARTHRITIS
  4. KLONOPIN [Concomitant]
     Indication: PANIC ATTACK
     Dosage: 0.05 MG - 1/2 TAB AS REQUIRED

REACTIONS (16)
  - Chest pain [Unknown]
  - Back pain [Unknown]
  - Dizziness [Recovering/Resolving]
  - Somnolence [Recovering/Resolving]
  - Asthenia [Unknown]
  - Restlessness [Unknown]
  - Dizziness [Unknown]
  - Dyspnoea [Unknown]
  - Panic attack [Unknown]
  - Asthenia [Unknown]
  - Fatigue [Unknown]
  - Musculoskeletal pain [Unknown]
  - Panic disorder [Unknown]
  - Anxiety [Unknown]
  - Heart rate decreased [Unknown]
  - Dyspnoea [Unknown]
